FAERS Safety Report 8192566-3 (Version None)
Quarter: 2012Q1

REPORT INFORMATION
  Report Type: 
  Country: None (occurrence: None)
  Receive Date: 20120308
  Receipt Date: 20120306
  Transmission Date: 20120608
  Serious: Yes (Other)
  Sender: FDA-Public Use
  Company Number: US-SP-2011-11873

PATIENT
  Sex: Male

DRUGS (5)
  1. AMBIEN [Concomitant]
  2. PROTONIX [Concomitant]
  3. TUBERSOL [Suspect]
     Indication: TUBERCULIN TEST
     Route: 023
     Dates: start: 20111108, end: 20111108
  4. FLUVIRIN [Suspect]
     Indication: IMMUNISATION
     Route: 065
  5. LISINOPRIL [Concomitant]

REACTIONS (10)
  - LOSS OF CONSCIOUSNESS [None]
  - PYREXIA [None]
  - SKIN REACTION [None]
  - PAIN [None]
  - SUBCUTANEOUS NODULE [None]
  - PETECHIAE [None]
  - MALAISE [None]
  - INJECTION SITE INDURATION [None]
  - BLISTER [None]
  - BLOOD PRESSURE FLUCTUATION [None]
